FAERS Safety Report 19740936 (Version 3)
Quarter: 2021Q4

REPORT INFORMATION
  Report Type: Other
  Country: US (occurrence: None)
  Receive Date: 20210825
  Receipt Date: 20211103
  Transmission Date: 20220304
  Serious: Yes (Other)
  Sender: FDA-Public Use
  Company Number: US-ROCHE-2896826

PATIENT
  Sex: Female

DRUGS (5)
  1. OCREVUS [Suspect]
     Active Substance: OCRELIZUMAB
     Indication: Relapsing multiple sclerosis
     Route: 042
     Dates: end: 20210222
  2. BETASERON [Concomitant]
     Active Substance: INTERFERON BETA-1B
  3. FOSAMAX [Concomitant]
     Active Substance: ALENDRONATE SODIUM
  4. BACLOFEN [Concomitant]
     Active Substance: BACLOFEN
  5. OXCARBAZEPINE [Concomitant]
     Active Substance: OXCARBAZEPINE

REACTIONS (1)
  - Breast cancer stage II [Not Recovered/Not Resolved]

NARRATIVE: CASE EVENT DATE: 20210101
